FAERS Safety Report 9124268 (Version 3)
Quarter: 2019Q4

REPORT INFORMATION
  Report Type: Spontaneous
  Country: US (occurrence: US)
  Receive Date: 20130227
  Receipt Date: 20191219
  Transmission Date: 20200122
  Serious: Yes (Other)
  Sender: FDA-Public Use
  Company Number: US-UCBSA-079244

PATIENT
  Sex: Female
  Weight: 63 kg

DRUGS (2)
  1. NO CONCOMITANT MEDICATION [Concomitant]
     Active Substance: UNSPECIFIED INGREDIENT
  2. CIMZIA [Suspect]
     Active Substance: CERTOLIZUMAB PEGOL
     Dosage: 200 MG, EV 4 WEEKS
     Dates: start: 20110831

REACTIONS (1)
  - Herpes zoster [Unknown]
